FAERS Safety Report 9201208 (Version 9)
Quarter: 2014Q2

REPORT INFORMATION
  Report Type: Report from Study
  Country: DE (occurrence: DE)
  Receive Date: 20130401
  Receipt Date: 20140505
  Transmission Date: 20141212
  Serious: Yes (Hospitalization, Other)
  Sender: FDA-Public Use
  Company Number: PHHO2013DE004276

PATIENT
  Sex: 0

DRUGS (3)
  1. AMN107 [Suspect]
     Indication: CHRONIC MYELOID LEUKAEMIA
     Dosage: 400 MG, BID
     Route: 048
     Dates: start: 20130207, end: 20130322
  2. LDE 225 [Suspect]
     Indication: CHRONIC MYELOID LEUKAEMIA
     Dosage: 600 MG, QD
     Route: 048
     Dates: start: 20130208, end: 20130320
  3. MAGNESIUM [Concomitant]
     Indication: MUSCLE SPASMS
     Dosage: 400 MG, DAILY
     Dates: start: 200704

REACTIONS (2)
  - Myocardial necrosis marker increased [Recovering/Resolving]
  - Rhabdomyolysis [Recovering/Resolving]
